FAERS Safety Report 4333236-9 (Version None)
Quarter: 2004Q1

REPORT INFORMATION
  Report Type: 
  Country: None (occurrence: None)
  Receive Date: 20040330
  Receipt Date: 20040316
  Transmission Date: 20041129
  Serious: No
  Sender: FDA-Public Use
  Company Number: 04P-163-0254388-00

PATIENT
  Sex: Female

DRUGS (4)
  1. ULTANE [Suspect]
     Indication: MAINTENANCE OF ANAESTHESIA
     Dosage: 3.5 %, ONCE, INHALATION
     Route: 055
     Dates: start: 20040311, end: 20040311
  2. PROPOFOL [Concomitant]
  3. FENTANYL [Concomitant]
  4. MIDAZOLAM HYDROCHLORIDE [Concomitant]

REACTIONS (4)
  - ANAESTHETIC COMPLICATION [None]
  - HEART RATE INCREASED [None]
  - MOVEMENT DISORDER [None]
  - UNWANTED AWARENESS DURING ANAESTHESIA [None]
